FAERS Safety Report 8536726-8 (Version None)
Quarter: 2012Q3

REPORT INFORMATION
  Report Type: 
  Country: None (occurrence: None)
  Receive Date: 20120725
  Receipt Date: 20120717
  Transmission Date: 20120928
  Serious: Yes (Other)
  Sender: FDA-Public Use
  Company Number: US-US-EMD SERONO, INC.-7148513

PATIENT
  Sex: Female

DRUGS (3)
  1. LEVETIRACETAM [Concomitant]
     Indication: CONVULSION
  2. REBIF [Suspect]
     Indication: MULTIPLE SCLEROSIS
     Route: 058
     Dates: start: 20020701, end: 20110801
  3. REBIF [Suspect]
     Route: 058
     Dates: start: 20111101

REACTIONS (4)
  - UTERINE PROLAPSE [None]
  - INJECTION SITE ERYTHEMA [None]
  - INJECTION SITE HAEMATOMA [None]
  - WALKING DISABILITY [None]
